FAERS Safety Report 24034552 (Version 1)
Quarter: 2024Q2

REPORT INFORMATION
  Report Type: Spontaneous
  Country: US (occurrence: None)
  Receive Date: 20240628
  Receipt Date: 20240628
  Transmission Date: 20240716
  Serious: Yes (Life-Threatening, Hospitalization, Disabling)
  Sender: FDA-Public Use
  Company Number: None

PATIENT
  Age: 73 Year
  Sex: Female
  Weight: 54.9 kg

DRUGS (1)
  1. LEQEMBI [Suspect]
     Active Substance: LECANEMAB-IRMB
     Indication: Dementia Alzheimer^s type
     Dates: start: 20240522, end: 20240522

REACTIONS (8)
  - Infusion related reaction [None]
  - Chills [None]
  - Malaise [None]
  - Fatigue [None]
  - Acute kidney injury [None]
  - Hyperkalaemia [None]
  - Hyponatraemia [None]
  - Dialysis [None]

NARRATIVE: CASE EVENT DATE: 20240522
